FAERS Safety Report 15515464 (Version 1)
Quarter: 2018Q4

REPORT INFORMATION
  Report Type: Spontaneous
  Country: US (occurrence: US)
  Receive Date: 20181017
  Receipt Date: 20181017
  Transmission Date: 20190205
  Serious: Yes (Hospitalization, Other)
  Sender: FDA-Public Use
  Company Number: US-APOTEX-2018AP022570

PATIENT
  Age: 41 Year
  Sex: Male

DRUGS (15)
  1. MIDAZOLAM [Suspect]
     Active Substance: MIDAZOLAM HYDROCHLORIDE
     Indication: STATUS EPILEPTICUS
     Route: 041
  2. CLOBAZAM. [Suspect]
     Active Substance: CLOBAZAM
     Indication: EPILEPSY
     Dosage: UNK, UNKNOWN
     Route: 065
  3. KETAMINE [Suspect]
     Active Substance: KETAMINE
     Indication: STATUS EPILEPTICUS
     Dosage: 3 MG/KG, UNK
     Route: 040
  4. KETAMINE [Suspect]
     Active Substance: KETAMINE
     Dosage: 3-4 MG/KG, Q.H.
     Route: 040
  5. CARBAMAZEPINE. [Suspect]
     Active Substance: CARBAMAZEPINE
     Indication: EPILEPSY
     Dosage: UNK, UNKNOWN
     Route: 065
  6. VALPROIC ACID. [Suspect]
     Active Substance: VALPROIC ACID
     Indication: EPILEPSY
     Dosage: UNK, UNKNOWN
     Route: 065
  7. LEVETIRACETAM. [Suspect]
     Active Substance: LEVETIRACETAM
     Indication: EPILEPSY
     Dosage: UNK, UNKNOWN
     Route: 065
  8. TOPIRAMATE. [Suspect]
     Active Substance: TOPIRAMATE
     Indication: EPILEPSY
     Dosage: UNK, UNKNOWN
     Route: 065
  9. PROPOFOL. [Suspect]
     Active Substance: PROPOFOL
     Indication: STATUS EPILEPTICUS
     Dosage: UNK, UNKNOWN
     Route: 041
  10. GABAPENTIN. [Suspect]
     Active Substance: GABAPENTIN
     Indication: EPILEPSY
     Dosage: UNK, UNKNOWN
     Route: 065
  11. OXCARBAZEPINE. [Suspect]
     Active Substance: OXCARBAZEPINE
     Indication: EPILEPSY
     Dosage: UNK, UNKNOWN
     Route: 065
  12. LACOSAMIDA [Suspect]
     Active Substance: LACOSAMIDE
     Indication: EPILEPSY
     Dosage: UNK, UNKNOWN
     Route: 065
  13. KETAMINE [Suspect]
     Active Substance: KETAMINE
     Dosage: 1.5 MG/KG, Q.H.
     Route: 040
  14. FOSPHENYTOIN [Suspect]
     Active Substance: FOSPHENYTOIN
     Indication: EPILEPSY
     Dosage: UNK, UNKNOWN
     Route: 065
  15. PHENYTOIN. [Suspect]
     Active Substance: PHENYTOIN
     Indication: EPILEPSY
     Dosage: UNK, UNKNOWN
     Route: 065

REACTIONS (5)
  - Anticonvulsant drug level above therapeutic [Unknown]
  - Anticonvulsant drug level below therapeutic [Unknown]
  - Renal tubular acidosis [Unknown]
  - Thrombocytopenia [Unknown]
  - Drug ineffective [Unknown]
